FAERS Safety Report 13209474 (Version 1)
Quarter: 2017Q1

REPORT INFORMATION
  Report Type: Spontaneous
  Country: US (occurrence: US)
  Receive Date: 20170209
  Receipt Date: 20170209
  Transmission Date: 20170428
  Serious: No
  Sender: FDA-Public Use
  Company Number: US-ALLERGAN-1638018US

PATIENT
  Age: 50 Year
  Sex: Female

DRUGS (6)
  1. XANAX [Concomitant]
     Active Substance: ALPRAZOLAM
     Indication: ANXIETY
  2. AMBIEN [Concomitant]
     Active Substance: ZOLPIDEM TARTRATE
     Indication: INSOMNIA
  3. ALLEGRA [Concomitant]
     Active Substance: FEXOFENADINE HYDROCHLORIDE
     Indication: HYPERSENSITIVITY
  4. JUVEDERM [Concomitant]
     Active Substance: HYALURONIC ACID
     Indication: BLEPHARAL PIGMENTATION
     Dosage: UNK
     Dates: start: 20151219, end: 20151219
  5. BOTOX [Suspect]
     Active Substance: ONABOTULINUMTOXINA
     Indication: SKIN WRINKLING
     Dosage: 20 UNITS, SINGLE
     Route: 030
     Dates: start: 20151214, end: 20151214
  6. RADIESSE [Concomitant]
     Active Substance: TRIBASIC CALCIUM PHOSPHATE
     Indication: PRODUCT USED FOR UNKNOWN INDICATION
     Dosage: UNK ML, UNK
     Dates: start: 20151214, end: 20151214

REACTIONS (2)
  - Acne [Unknown]
  - Injection site swelling [Recovering/Resolving]

NARRATIVE: CASE EVENT DATE: 20151219
